FAERS Safety Report 9832663 (Version 2)
Quarter: 2014Q1

REPORT INFORMATION
  Report Type: Spontaneous
  Country: FR (occurrence: FR)
  Receive Date: 20140121
  Receipt Date: 20140121
  Transmission Date: 20141002
  Serious: Yes (Other)
  Sender: FDA-Public Use
  Company Number: FR-TEVA-454932ISR

PATIENT
  Sex: Female
  Weight: 50 kg

DRUGS (1)
  1. LEELOO [Suspect]
     Indication: CONTRACEPTION
     Dosage: 1 DOSAGE FORMS DAILY;
     Route: 048
     Dates: start: 201305, end: 20131115

REACTIONS (4)
  - Dry eye [Not Recovered/Not Resolved]
  - Eye irritation [Unknown]
  - Eye pain [Unknown]
  - Device intolerance [Not Recovered/Not Resolved]
